FAERS Safety Report 15585427 (Version 4)
Quarter: 2019Q1

REPORT INFORMATION
  Report Type: Report from Study
  Country: US (occurrence: US)
  Receive Date: 20181102
  Receipt Date: 20190319
  Transmission Date: 20190417
  Serious: Yes (Death, Disabling)
  Sender: FDA-Public Use
  Company Number: US-ACTELION-A-US2016-133943

PATIENT
  Age: 71 Year
  Sex: Female

DRUGS (36)
  1. DICYCLOMINE [Concomitant]
     Active Substance: DICYCLOMINE HYDROCHLORIDE
  2. RANITIDINE. [Concomitant]
     Active Substance: RANITIDINE
  3. WARFARIN [Concomitant]
     Active Substance: WARFARIN
  4. CLONAZEPAM. [Concomitant]
     Active Substance: CLONAZEPAM
  5. ESCITALOPRAM [Concomitant]
     Active Substance: ESCITALOPRAM OXALATE
  6. FUROSEMIDE. [Concomitant]
     Active Substance: FUROSEMIDE
  7. CYCLOBENZAPRINE. [Concomitant]
     Active Substance: CYCLOBENZAPRINE
  8. CITRUCEL [Concomitant]
     Active Substance: METHYLCELLULOSE (4000 MPA.S)
     Dosage: UNK
  9. CEFDINIR. [Concomitant]
     Active Substance: CEFDINIR
  10. TRACLEER [Suspect]
     Active Substance: BOSENTAN
     Indication: CHRONIC OBSTRUCTIVE PULMONARY DISEASE
     Dosage: 125 MG, UNK
     Route: 048
     Dates: start: 20120618
  11. BUMETANIDE. [Concomitant]
     Active Substance: BUMETANIDE
  12. LISINOPRIL. [Concomitant]
     Active Substance: LISINOPRIL
  13. DONEPEZIL. [Concomitant]
     Active Substance: DONEPEZIL
  14. AZITHROMYCIN ANHYDROUS. [Concomitant]
     Active Substance: AZITHROMYCIN ANHYDROUS
     Dosage: 1 GRAM, UNK
  15. AZITHROMYCINUM [Concomitant]
     Dosage: 1 G, UNK
  16. LEVAQUIN [Concomitant]
     Active Substance: LEVOFLOXACIN
     Dosage: 25 MG/ML, UNK
  17. VERAMYST [Concomitant]
     Active Substance: FLUTICASONE FUROATE
  18. KLOR-CON M10 [Concomitant]
     Active Substance: POTASSIUM CHLORIDE
  19. LINZESS [Concomitant]
     Active Substance: LINACLOTIDE
     Dosage: 145 MCG, UNK
  20. ZONISAMIDE. [Concomitant]
     Active Substance: ZONISAMIDE
  21. GABAPENTIN. [Concomitant]
     Active Substance: GABAPENTIN
  22. SPIRONOLACTONE. [Concomitant]
     Active Substance: SPIRONOLACTONE
  23. TRACLEER [Suspect]
     Active Substance: BOSENTAN
     Dosage: 125 MG, UNK
     Route: 048
     Dates: start: 20160927
  24. CARVEDILOL. [Concomitant]
     Active Substance: CARVEDILOL
  25. HYDROCODONE/ACETAMINOPHEN [Concomitant]
     Active Substance: ACETAMINOPHEN\HYDROCODONE
  26. PANTOPRAZOLE [Concomitant]
     Active Substance: PANTOPRAZOLE
  27. COUMADIN [Concomitant]
     Active Substance: WARFARIN SODIUM
  28. CEPHALEXIN. [Concomitant]
     Active Substance: CEPHALEXIN
  29. PRIMIDONE. [Concomitant]
     Active Substance: PRIMIDONE
  30. VOLTAREN [Concomitant]
     Active Substance: DICLOFENAC SODIUM
  31. AMOXICILLIN. [Concomitant]
     Active Substance: AMOXICILLIN
  32. POLY-IRON [Concomitant]
     Active Substance: IRON
  33. VITAMIN B12 [Concomitant]
     Active Substance: CYANOCOBALAMIN
  34. DIGOXIN. [Concomitant]
     Active Substance: DIGOXIN
  35. METOPROLOL TARTRATE. [Concomitant]
     Active Substance: METOPROLOL TARTRATE
  36. ARMODAFINIL. [Concomitant]
     Active Substance: ARMODAFINIL
     Dosage: 250 MG, UNK

REACTIONS (7)
  - Dizziness [Not Recovered/Not Resolved]
  - Death [Fatal]
  - Sinusitis [Recovered/Resolved]
  - Blood pressure abnormal [Not Recovered/Not Resolved]
  - Somnolence [Not Recovered/Not Resolved]
  - Hospice care [Not Recovered/Not Resolved]
  - Chronic sinusitis [Unknown]

NARRATIVE: CASE EVENT DATE: 20160301
